FAERS Safety Report 17918157 (Version 1)
Quarter: 2020Q2

REPORT INFORMATION
  Report Type: Spontaneous
  Country: US (occurrence: US)
  Receive Date: 20200619
  Receipt Date: 20200619
  Transmission Date: 20200714
  Serious: Yes (Other)
  Sender: FDA-Public Use
  Company Number: US-ASTRAZENECA-2018SF66234

PATIENT
  Age: 22021 Day
  Sex: Male

DRUGS (22)
  1. NEXIUM [Suspect]
     Active Substance: ESOMEPRAZOLE MAGNESIUM
     Dosage: 40.0MG UNKNOWN
     Route: 048
     Dates: start: 20140109
  2. PRILOSEC [Suspect]
     Active Substance: OMEPRAZOLE MAGNESIUM
     Dosage: GENERIC40.0MG UNKNOWN
     Route: 048
     Dates: start: 20140131
  3. SMZ/TMP [Concomitant]
     Active Substance: SULFAMETHOXAZOLE\TRIMETHOPRIM
  4. GABAPENTIN. [Concomitant]
     Active Substance: GABAPENTIN
  5. LYRICA [Concomitant]
     Active Substance: PREGABALIN
  6. VENTOLIN [Concomitant]
     Active Substance: ALBUTEROL SULFATE
  7. LIDOCAINE. [Concomitant]
     Active Substance: LIDOCAINE
  8. FENOFIBRATE. [Concomitant]
     Active Substance: FENOFIBRATE
  9. NASONEX [Concomitant]
     Active Substance: MOMETASONE FUROATE
  10. PRILOSEC [Suspect]
     Active Substance: OMEPRAZOLE MAGNESIUM
     Dosage: GENERIC40.0MG UNKNOWN
     Route: 048
     Dates: start: 20150421
  11. DESLORATADINE. [Concomitant]
     Active Substance: DESLORATADINE
  12. FLUTICASONE. [Concomitant]
     Active Substance: FLUTICASONE
  13. NORTRIPTYLINE [Concomitant]
     Active Substance: NORTRIPTYLINE
  14. NEXIUM [Suspect]
     Active Substance: ESOMEPRAZOLE MAGNESIUM
     Route: 048
  15. FLULAVAL [Concomitant]
  16. LISINOPRIL. [Concomitant]
     Active Substance: LISINOPRIL
  17. PROAIR HFA [Concomitant]
     Active Substance: ALBUTEROL SULFATE
  18. ADVAIR HFA [Concomitant]
     Active Substance: FLUTICASONE PROPIONATE\SALMETEROL XINAFOATE
  19. PRILOSEC [Suspect]
     Active Substance: OMEPRAZOLE MAGNESIUM
     Dosage: UNKNOWN
     Route: 048
  20. DEXILANT [Concomitant]
     Active Substance: DEXLANSOPRAZOLE
  21. QVAR [Concomitant]
     Active Substance: BECLOMETHASONE DIPROPIONATE
  22. AMLODIPINE [Concomitant]
     Active Substance: AMLODIPINE BESYLATE

REACTIONS (1)
  - Chronic kidney disease [Unknown]

NARRATIVE: CASE EVENT DATE: 20180320
